FAERS Safety Report 16795782 (Version 1)
Quarter: 2019Q3

REPORT INFORMATION
  Report Type: Spontaneous
  Country: US (occurrence: US)
  Receive Date: 20190911
  Receipt Date: 20190911
  Transmission Date: 20191005
  Serious: Yes (Other)
  Sender: FDA-Public Use
  Company Number: US-AMGEN-USASP2019144037

PATIENT
  Age: 81 Year
  Sex: Male

DRUGS (2)
  1. TALIMOGENE LAHERPAREPVEC [Suspect]
     Active Substance: TALIMOGENE LAHERPAREPVEC
     Dosage: 1 TO 4 ML OF 108 PFU/ML
     Route: 026
  2. TALIMOGENE LAHERPAREPVEC [Suspect]
     Active Substance: TALIMOGENE LAHERPAREPVEC
     Indication: NEUROENDOCRINE CARCINOMA OF THE SKIN
     Dosage: INITIAL DOSE OF 1 TO 4 ML OF 106 PFU/ML
     Route: 026

REACTIONS (3)
  - Off label use [Unknown]
  - Tumour pseudoprogression [Recovered/Resolved]
  - Influenza like illness [Unknown]
